FAERS Safety Report 10252063 (Version 1)
Quarter: 2014Q2

REPORT INFORMATION
  Report Type: Spontaneous
  Country: ES (occurrence: ES)
  Receive Date: 20140623
  Receipt Date: 20140623
  Transmission Date: 20141212
  Serious: Yes (Life-Threatening, Hospitalization)
  Sender: FDA-Public Use
  Company Number: PHHY2014ES075130

PATIENT
  Age: 77 Year
  Sex: Male

DRUGS (2)
  1. PROMETAX [Suspect]
     Indication: DEMENTIA ALZHEIMER^S TYPE
     Dosage: 9.5 MG, QD
     Route: 062
     Dates: start: 20140408, end: 20140528
  2. XERISTAR [Suspect]
     Indication: URINARY INCONTINENCE
     Dosage: 60 MG, QD
     Route: 048
     Dates: start: 20131104, end: 20140527

REACTIONS (4)
  - Renal failure acute [Recovering/Resolving]
  - Urinary retention [Recovered/Resolved]
  - Hyperkalaemia [Recovered/Resolved]
  - General physical health deterioration [Recovering/Resolving]
